FAERS Safety Report 9723057 (Version 1)
Quarter: 2013Q4

REPORT INFORMATION
  Report Type: Spontaneous
  Country: BG (occurrence: None)
  Receive Date: 20131126
  Receipt Date: 20131126
  Transmission Date: 20140711
  Serious: Yes (Hospitalization)
  Sender: FDA-Public Use
  Company Number: FK201304616

PATIENT
  Sex: Female

DRUGS (2)
  1. PROPOFOL [Suspect]
     Indication: INDUCTION OF ANAESTHESIA
     Dosage: INTRAVENOUS (NOT OTHERWISE SPECIFIED)
  2. SEVOFLURANE (SEVOFLURANE) [Concomitant]

REACTIONS (6)
  - Chills [None]
  - Body temperature increased [None]
  - Cyanosis [None]
  - Malaise [None]
  - Vomiting [None]
  - Vasoconstriction [None]
